FAERS Safety Report 20576498 (Version 1)
Quarter: 2022Q1

REPORT INFORMATION
  Report Type: Spontaneous
  Country: US (occurrence: US)
  Receive Date: 20220310
  Receipt Date: 20220310
  Transmission Date: 20220423
  Serious: Yes (Hospitalization)
  Sender: FDA-Public Use
  Company Number: US-STRIDES ARCOLAB LIMITED-2021SP030870

PATIENT
  Age: 56 Year
  Sex: Male

DRUGS (1)
  1. PREDNISOLONE [Suspect]
     Active Substance: PREDNISOLONE
     Indication: Myalgia
     Dosage: UNK
     Route: 065

REACTIONS (3)
  - Cryptococcosis [Unknown]
  - Gastroenteritis [Unknown]
  - Disseminated cryptococcosis [Unknown]
